FAERS Safety Report 7094029-5 (Version None)
Quarter: 2010Q4

REPORT INFORMATION
  Report Type: 
  Country: None (occurrence: None)
  Receive Date: 20101110
  Receipt Date: 20101104
  Transmission Date: 20110411
  Serious: Yes (Hospitalization, Other)
  Sender: FDA-Public Use
  Company Number: BR-ABBOTT-10P-020-0647993-00

PATIENT
  Sex: Female
  Weight: 67 kg

DRUGS (7)
  1. HUMIRA [Suspect]
     Indication: RHEUMATOID ARTHRITIS
     Route: 058
     Dates: start: 20080801
  2. DEFLAZACORT [Concomitant]
     Indication: RHEUMATOID ARTHRITIS
     Route: 048
  3. MICARDIS HCT [Concomitant]
     Indication: BLOOD PRESSURE
     Dosage: 80MG/12.5MG, DAILY
     Route: 048
  4. TIBOLONE [Concomitant]
     Indication: HORMONE REPLACEMENT THERAPY
     Route: 048
  5. TRIMEBUTINE [Concomitant]
     Indication: DYSPEPSIA
     Route: 048
  6. LEVOTHYROXINE [Concomitant]
     Indication: THYROID DISORDER
     Route: 048
  7. CLOXAZOLAM [Concomitant]
     Indication: STRESS
     Route: 048

REACTIONS (13)
  - ABDOMINAL PAIN [None]
  - ARTHRITIS [None]
  - BLOOD CHOLESTEROL ABNORMAL [None]
  - DENGUE FEVER [None]
  - DIVERTICULITIS [None]
  - DRY EYE [None]
  - FISTULA [None]
  - HEPATITIS [None]
  - JOINT EFFUSION [None]
  - MENISCAL DEGENERATION [None]
  - PLATELET COUNT DECREASED [None]
  - THYROID NEOPLASM [None]
  - VOMITING [None]
